FAERS Safety Report 24607956 (Version 1)
Quarter: 2024Q4

REPORT INFORMATION
  Report Type: Spontaneous
  Country: US (occurrence: US)
  Receive Date: 20241112
  Receipt Date: 20241112
  Transmission Date: 20250115
  Serious: No
  Sender: APOTEX
  Company Number: US-APOTEX-2024AP017304

PATIENT
  Age: 23 Day
  Sex: Male

DRUGS (2)
  1. BUSULFAN [Suspect]
     Active Substance: BUSULFAN
     Indication: Bone marrow conditioning regimen
     Dosage: UNK
     Route: 065
  2. SIROLIMUS [Suspect]
     Active Substance: SIROLIMUS
     Indication: Bone marrow conditioning regimen
     Route: 065

REACTIONS (3)
  - Toxicity to various agents [Unknown]
  - Rash erythematous [Unknown]
  - Mucosal inflammation [Unknown]
